FAERS Safety Report 12325009 (Version 1)
Quarter: 2016Q2

REPORT INFORMATION
  Report Type: Spontaneous
  Country: TN (occurrence: TN)
  Receive Date: 20160502
  Receipt Date: 20160502
  Transmission Date: 20160815
  Serious: Yes (Other)
  Sender: FDA-Public Use
  Company Number: TN-HQ SPECIALTY-TN-2016INT000227

PATIENT
  Age: 67 Year
  Sex: Male

DRUGS (2)
  1. CISPLATIN. [Suspect]
     Active Substance: CISPLATIN
     Indication: NON-SMALL CELL LUNG CANCER METASTATIC
     Dosage: 80 MG/M2, EVERY WEEK
     Dates: start: 201501, end: 2015
  2. GEMCITABINE [Suspect]
     Active Substance: GEMCITABINE\GEMCITABINE HYDROCHLORIDE
     Indication: NON-SMALL CELL LUNG CANCER METASTATIC
     Dosage: 700 MG/M2, EVERY WEEK
     Dates: start: 201501, end: 2015

REACTIONS (6)
  - Peripheral ischaemia [Not Recovered/Not Resolved]
  - Pain [Not Recovered/Not Resolved]
  - Paraesthesia [Not Recovered/Not Resolved]
  - Skin lesion [Unknown]
  - Gangrene [Unknown]
  - Oedema [Unknown]

NARRATIVE: CASE EVENT DATE: 2015
